FAERS Safety Report 9917915 (Version 1)
Quarter: 2014Q1

REPORT INFORMATION
  Report Type: Spontaneous
  Country: FR (occurrence: FR)
  Receive Date: 20140222
  Receipt Date: 20140222
  Transmission Date: 20141002
  Serious: Yes (Hospitalization)
  Sender: FDA-Public Use
  Company Number: FR-ROCHE-1351266

PATIENT
  Age: 64 Year
  Sex: Female
  Weight: 45 kg

DRUGS (10)
  1. ZELBORAF [Suspect]
     Indication: MALIGNANT MELANOMA
     Route: 048
     Dates: start: 201307, end: 20130827
  2. TENORMINE [Concomitant]
     Route: 048
  3. KAYEXALATE [Concomitant]
     Route: 048
  4. LASILIX [Concomitant]
  5. COZAAR [Concomitant]
     Route: 048
  6. RENAGEL [Concomitant]
     Route: 048
  7. DEDROGYL [Concomitant]
     Route: 048
  8. ALPRESS LP [Concomitant]
     Route: 048
  9. DAFALGAN [Concomitant]
     Route: 048
  10. AERIUS [Concomitant]

REACTIONS (2)
  - Thrombocytopenia [Recovered/Resolved]
  - Anaemia [Recovered/Resolved]
